FAERS Safety Report 4321334-5 (Version None)
Quarter: 2004Q1

REPORT INFORMATION
  Report Type: 
  Country: None (occurrence: None)
  Receive Date: 20040322
  Receipt Date: 20030127
  Transmission Date: 20041129
  Serious: No
  Sender: FDA-Public Use
  Company Number: US-BRISTOL-MYERS SQUIBB COMPANY-12224804

PATIENT
  Age: 42 Year
  Sex: Female

DRUGS (1)
  1. MONISTAT [Suspect]
     Indication: VAGINAL MYCOSIS
     Route: 067
     Dates: start: 20030126, end: 20030126

REACTIONS (2)
  - PREGNANCY [None]
  - VULVAL OEDEMA [None]
